FAERS Safety Report 17136391 (Version 1)
Quarter: 2019Q4

REPORT INFORMATION
  Report Type: Spontaneous
  Country: JP (occurrence: JP)
  Receive Date: 20191210
  Receipt Date: 20191210
  Transmission Date: 20200122
  Serious: Yes (Other)
  Sender: FDA-Public Use
  Company Number: JP-SHIRE-JP201941761

PATIENT

DRUGS (2)
  1. FACTOR X [FACTOR X (STUART PROWER FACTOR)] [Concomitant]
     Indication: HAEMORRHAGE
     Route: 065
  2. FEIBA NF [Suspect]
     Active Substance: ANTI-INHIBITOR COAGULANT COMPLEX
     Indication: HAEMOPHILIA
     Dosage: 75 INTERNATIONAL UNIT/KILOGRAM, 3X A WEEK
     Route: 065

REACTIONS (2)
  - Therapeutic product effect decreased [Unknown]
  - Haemorrhage [Unknown]
